FAERS Safety Report 7438902-4 (Version None)
Quarter: 2011Q2

REPORT INFORMATION
  Report Type: 
  Country: None (occurrence: None)
  Receive Date: 20110426
  Receipt Date: 20110413
  Transmission Date: 20111010
  Serious: Yes (Hospitalization)
  Sender: FDA-Public Use
  Company Number: FR-GENENTECH-317034

PATIENT
  Sex: Male

DRUGS (5)
  1. RITUXIMAB [Suspect]
     Dosage: 820 MG, QAM
     Route: 041
     Dates: start: 20100126, end: 20100126
  2. FLUDARA [Suspect]
     Indication: CHRONIC LYMPHOCYTIC LEUKAEMIA
     Dosage: 70 MG, QAM
     Route: 002
     Dates: start: 20100126, end: 20100128
  3. ENDOXAN [Suspect]
     Dosage: 450 MG, QAM
     Route: 002
     Dates: start: 20100128
  4. RITUXIMAB [Suspect]
     Indication: CHRONIC LYMPHOCYTIC LEUKAEMIA
     Dosage: UNK
     Route: 041
  5. ENDOXAN [Suspect]
     Indication: NEOPLASM MALIGNANT
     Dosage: 400 MG, QAM
     Route: 002
     Dates: start: 20100126, end: 20100127

REACTIONS (1)
  - BRONCHOPULMONARY ASPERGILLOSIS [None]
